FAERS Safety Report 9345461 (Version 1)
Quarter: 2013Q2

REPORT INFORMATION
  Report Type: Report from Study
  Country: CA (occurrence: CA)
  Receive Date: 20130613
  Receipt Date: 20130613
  Transmission Date: 20140414
  Serious: Yes (Other)
  Sender: FDA-Public Use
  Company Number: CA-ROCHE-1236087

PATIENT
  Sex: Female
  Weight: 106.6 kg

DRUGS (14)
  1. RITUXAN [Suspect]
     Indication: ANTISYNTHETASE SYNDROME
     Dosage: FREQUENCY: DAY 1, DAY 15
     Route: 042
     Dates: start: 20121023
  2. RITUXAN [Suspect]
     Indication: OFF LABEL USE
     Route: 042
     Dates: start: 20121115
  3. PREDNISONE [Concomitant]
  4. RAMIPRIL [Concomitant]
  5. ATENOLOL [Concomitant]
  6. LASIX [Concomitant]
  7. PLAQUENIL [Concomitant]
  8. DOMPERIDONE [Concomitant]
  9. IMURAN [Concomitant]
  10. NOVORAPID [Concomitant]
  11. ACTONEL [Concomitant]
  12. TRAMADOL [Concomitant]
  13. MIRAPEX [Concomitant]
     Indication: RESTLESS LEGS SYNDROME
  14. COUMADIN [Concomitant]

REACTIONS (1)
  - Cataract [Unknown]
